FAERS Safety Report 8640772 (Version 2)
Quarter: 2015Q1

REPORT INFORMATION
  Report Type: Spontaneous
  Country: US (occurrence: US)
  Receive Date: 20120628
  Receipt Date: 20150126
  Transmission Date: 20150721
  Serious: Yes (Hospitalization)
  Sender: FDA-Public Use
  Company Number: US-PFIZER INC-2012152611

PATIENT
  Age: 57 Year
  Sex: Female
  Weight: 68.03 kg

DRUGS (3)
  1. REVATIO [Suspect]
     Active Substance: SILDENAFIL CITRATE
     Indication: LUNG TRANSPLANT
     Dosage: UNKNOWN DOSE THREE TABLETS, 3X/DAY
  2. SILDENAFIL CITRATE. [Suspect]
     Active Substance: SILDENAFIL CITRATE
     Indication: LUNG TRANSPLANT
     Dosage: UNK
  3. REVATIO [Suspect]
     Active Substance: SILDENAFIL CITRATE
     Dosage: UNKNOWN DOSE TWO TABLETS, 3X/DAY
     Dates: start: 2012

REACTIONS (5)
  - Activities of daily living impaired [Unknown]
  - Asthenia [Unknown]
  - Malaise [Unknown]
  - Depressed mood [Unknown]
  - Fear [Unknown]

NARRATIVE: CASE EVENT DATE: 2012
